FAERS Safety Report 7376569-4 (Version None)
Quarter: 2011Q1

REPORT INFORMATION
  Report Type: 
  Country: None (occurrence: None)
  Receive Date: 20110325
  Receipt Date: 20110322
  Transmission Date: 20110831
  Serious: Yes (Death, Life-Threatening, Hospitalization, Other)
  Sender: FDA-Public Use
  Company Number: BE-GENZYME-CAMP-10201

PATIENT
  Sex: Male
  Weight: 81.3 kg

DRUGS (16)
  1. ABELCET [Concomitant]
     Indication: PYREXIA
     Route: 042
     Dates: start: 20061230
  2. VFEND [Concomitant]
     Indication: PNEUMONIA
     Route: 042
     Dates: start: 20061127, end: 20061128
  3. NEUPOGEN [Concomitant]
     Indication: FEBRILE NEUTROPENIA
     Dosage: UNK
     Route: 058
     Dates: start: 20061125, end: 20070125
  4. NYSTATINE [Concomitant]
     Indication: PROPHYLAXIS
     Route: 048
     Dates: start: 20061111, end: 20061230
  5. MERONEM [Concomitant]
     Indication: BACTERIAL INFECTION
  6. LITICAN [Concomitant]
     Indication: NAUSEA
     Route: 042
     Dates: start: 20061124
  7. LYSOMUCIL [Concomitant]
     Indication: PNEUMONIA
     Route: 048
     Dates: start: 20061228, end: 20061230
  8. NORALGINE [Concomitant]
     Indication: PYREXIA
     Route: 042
     Dates: start: 20061226
  9. DIFLUCAN [Concomitant]
     Indication: PNEUMONIA
     Route: 042
     Dates: start: 20061125, end: 20061127
  10. BUSCOPAN [Concomitant]
     Indication: ABDOMINAL PAIN
     Route: 042
     Dates: start: 20061226
  11. ZANTAC [Concomitant]
     Indication: PROPHYLAXIS
     Dosage: 200 MG, QD
     Route: 042
     Dates: start: 20061124, end: 20061231
  12. STOMATOSTATINE [Concomitant]
     Indication: PRODUCT USED FOR UNKNOWN INDICATION
     Dosage: 6MG/24 H
  13. AMBISOME [Concomitant]
     Indication: PYREXIA
     Route: 042
     Dates: start: 20061128, end: 20061230
  14. CAMPATH [Suspect]
     Indication: CHRONIC LYMPHOCYTIC LEUKAEMIA
     Dosage: 30 MG, QOD
     Route: 058
     Dates: start: 20060925, end: 20061122
  15. MERONEM [Concomitant]
     Indication: PYREXIA
     Dosage: UNK
     Route: 042
     Dates: start: 20061231
  16. PANTOPRAZOLE SODIUM [Concomitant]
     Indication: GASTRIC DISORDER
     Dosage: 40 MG, UNK
     Route: 042
     Dates: start: 20061230

REACTIONS (5)
  - PANCYTOPENIA [None]
  - CHRONIC LYMPHOCYTIC LEUKAEMIA TRANSFORMATION [None]
  - PNEUMONIA FUNGAL [None]
  - SHOCK HAEMORRHAGIC [None]
  - GASTROINTESTINAL HAEMORRHAGE [None]
